FAERS Safety Report 12090257 (Version 2)
Quarter: 2016Q1

REPORT INFORMATION
  Report Type: Spontaneous
  Country: US (occurrence: US)
  Receive Date: 20160218
  Receipt Date: 20160224
  Transmission Date: 20160526
  Serious: No
  Sender: FDA-Public Use
  Company Number: US-BAYER-2016-026454

PATIENT
  Age: 46 Year
  Sex: Female

DRUGS (1)
  1. CLIMARA [Suspect]
     Active Substance: ESTRADIOL
     Dosage: 01 MG, UNK
     Route: 062
     Dates: start: 2014

REACTIONS (6)
  - Application site pain [Not Recovered/Not Resolved]
  - Device material issue [None]
  - Application site rash [None]
  - Pruritus [None]
  - Device adhesion issue [None]
  - Application site irritation [Not Recovered/Not Resolved]
